FAERS Safety Report 5739045-8 (Version None)
Quarter: 2008Q2

REPORT INFORMATION
  Report Type: 
  Country: None (occurrence: None)
  Receive Date: 20080515
  Receipt Date: 20080505
  Transmission Date: 20081010
  Serious: Yes (Congenital Anomaly, Other)
  Sender: FDA-Public Use
  Company Number: GB-ABBOTT-08P-167-0450270-00

PATIENT
  Sex: Female

DRUGS (1)
  1. VALPROIC ACID [Suspect]
     Indication: DRUG EXPOSURE DURING PREGNANCY
     Route: 064

REACTIONS (19)
  - COGNITIVE DISORDER [None]
  - CONGENITAL EYE DISORDER [None]
  - CONGENITAL NOSE MALFORMATION [None]
  - COORDINATION ABNORMAL [None]
  - DEVELOPMENTAL DELAY [None]
  - DRUG EXPOSURE DURING PREGNANCY [None]
  - DYSGRAPHIA [None]
  - DYSMORPHISM [None]
  - FOETAL ANTICONVULSANT SYNDROME [None]
  - FOETAL DISTRESS SYNDROME [None]
  - FOOT DEFORMITY [None]
  - HIGH ARCHED PALATE [None]
  - HYPOTONIA [None]
  - LEARNING DISORDER [None]
  - LIP DISORDER [None]
  - NEURODEVELOPMENTAL DISORDER [None]
  - READING DISORDER [None]
  - SKULL MALFORMATION [None]
  - SPEECH DISORDER DEVELOPMENTAL [None]
